FAERS Safety Report 25938707 (Version 1)
Quarter: 2025Q4

REPORT INFORMATION
  Report Type: Spontaneous
  Country: US (occurrence: US)
  Receive Date: 20251019
  Receipt Date: 20251019
  Transmission Date: 20260117
  Serious: No
  Sender: SANOFI AVENTIS
  Company Number: US-SA-2025SA311008

PATIENT
  Age: 31 Year
  Sex: Male
  Weight: 113.64 kg

DRUGS (3)
  1. DUPIXENT [Suspect]
     Active Substance: DUPILUMAB
     Indication: Dermatitis atopic
     Dosage: 300 MG, QOW
     Route: 058
     Dates: end: 20251011
  2. TACROLIMUS [Concomitant]
     Active Substance: TACROLIMUS
  3. CLOBETASOL [Concomitant]
     Active Substance: CLOBETASOL

REACTIONS (12)
  - Injection site mass [Unknown]
  - Dry skin [Not Recovered/Not Resolved]
  - Skin haemorrhage [Not Recovered/Not Resolved]
  - Skin laceration [Not Recovered/Not Resolved]
  - Pain [Not Recovered/Not Resolved]
  - Skin fissures [Not Recovered/Not Resolved]
  - Skin weeping [Not Recovered/Not Resolved]
  - Skin exfoliation [Not Recovered/Not Resolved]
  - Pruritus [Not Recovered/Not Resolved]
  - Rash [Not Recovered/Not Resolved]
  - Dermatitis atopic [Unknown]
  - Therapeutic response shortened [Unknown]

NARRATIVE: CASE EVENT DATE: 20251001
